FAERS Safety Report 8340847 (Version 3)
Quarter: 2012Q4

REPORT INFORMATION
  Report Type: 
  Country: DE (occurrence: FR)
  Receive Date: 20120118
  Receipt Date: 20121213
  Transmission Date: 20130627
  Serious: Yes (Hospitalization)
  Sender: FDA-Public Use
  Company Number: FR-BRISTOL-MYERS SQUIBB COMPANY-16349367

PATIENT
  Age: 68 Year
  Sex: Male

DRUGS (5)
  1. ERBITUX SOLN FOR INF [Suspect]
     Indication: COLON CANCER
     Dosage: 5th course,Reconstituted in abag of Nacl 0.9%,500ml fleeflex fresenius kabi
     Route: 042
     Dates: start: 20111228, end: 20111228
  2. CALCIUM LEVOFOLINATE [Suspect]
     Indication: COLON CANCER
     Dosage: powder for inj,Cl levofolinate winthrop,Recd in a bag of glucose 5% fleeflex fresenius kabi 250ml
     Route: 042
     Dates: start: 20111228, end: 20111228
  3. GLUCOSE [Suspect]
     Dosage: Glucose fresenius,Solution for inj
     Route: 042
     Dates: start: 20111228, end: 20111228
  4. SODIUM CHLORIDE [Suspect]
     Dosage: 1 Df : 500ml/l,Chloride sodium fresenius(Calcium chloride dihydrate),solution for injection
     Route: 042
     Dates: start: 20111228, end: 20111228
  5. OMEXEL LP [Concomitant]
     Dosage: tab
     Route: 048

REACTIONS (2)
  - Stevens-Johnson syndrome [Recovered/Resolved]
  - Pruritus [Recovered/Resolved]
